FAERS Safety Report 11708781 (Version 1)
Quarter: 2015Q4

REPORT INFORMATION
  Report Type: Spontaneous
  Country: US (occurrence: US)
  Receive Date: 20151104
  Receipt Date: 20151104
  Transmission Date: 20160304
  Serious: No
  Sender: FDA-Public Use
  Company Number: US-ELI_LILLY_AND_COMPANY-US201108005979

PATIENT
  Age: 68 Year
  Sex: Female

DRUGS (1)
  1. FORTEO [Suspect]
     Active Substance: TERIPARATIDE
     Indication: OSTEOPOROSIS
     Dosage: 20 UG, QD
     Dates: start: 20110223

REACTIONS (22)
  - Malaise [Not Recovered/Not Resolved]
  - Decreased appetite [Recovering/Resolving]
  - Rhinitis [Recovering/Resolving]
  - Asthenia [Not Recovered/Not Resolved]
  - Insomnia [Unknown]
  - Pain [Recovering/Resolving]
  - Intentional product misuse [Recovered/Resolved]
  - Visual impairment [Recovering/Resolving]
  - Headache [Recovering/Resolving]
  - Musculoskeletal stiffness [Recovering/Resolving]
  - Balance disorder [Unknown]
  - Tinnitus [Recovering/Resolving]
  - Limb discomfort [Recovering/Resolving]
  - Dizziness [Unknown]
  - Sinusitis [Recovering/Resolving]
  - Gait disturbance [Recovering/Resolving]
  - Feeling hot [Recovering/Resolving]
  - Chest discomfort [Unknown]
  - Musculoskeletal discomfort [Recovering/Resolving]
  - Muscle spasms [Recovering/Resolving]
  - Accidental overdose [Unknown]
  - Drug dose omission [Recovered/Resolved]

NARRATIVE: CASE EVENT DATE: 201107
